FAERS Safety Report 9733886 (Version 1)
Quarter: 2013Q4

REPORT INFORMATION
  Report Type: Spontaneous
  Country: ES (occurrence: ES)
  Receive Date: 20131205
  Receipt Date: 20131205
  Transmission Date: 20140711
  Serious: Yes (Other)
  Sender: FDA-Public Use
  Company Number: ES-JNJFOC-20131117682

PATIENT
  Age: 36 Year
  Sex: Female

DRUGS (4)
  1. FUNGAREST [Suspect]
     Indication: CUSHING^S SYNDROME
     Route: 065
     Dates: start: 20130927
  2. FUNGAREST [Suspect]
     Indication: CUSHING^S SYNDROME
     Route: 065
  3. FUNGAREST [Suspect]
     Indication: CUSHING^S SYNDROME
     Route: 065
  4. FUNGAREST [Suspect]
     Indication: CUSHING^S SYNDROME
     Route: 065
     Dates: start: 201306

REACTIONS (7)
  - Adrenal insufficiency [Not Recovered/Not Resolved]
  - Tinnitus [Not Recovered/Not Resolved]
  - Alopecia [Unknown]
  - Skin exfoliation [Unknown]
  - Intracranial pressure increased [Unknown]
  - Localised infection [Unknown]
  - Off label use [Unknown]
